FAERS Safety Report 6680413-8 (Version None)
Quarter: 2010Q2

REPORT INFORMATION
  Report Type: 
  Country: None (occurrence: None)
  Receive Date: 20100413
  Receipt Date: 20100409
  Transmission Date: 20101027
  Serious: Yes (Life-Threatening)
  Sender: FDA-Public Use
  Company Number: FR-BRISTOL-MYERS SQUIBB COMPANY-15057094

PATIENT
  Age: 57 Year
  Sex: Female

DRUGS (2)
  1. APROVEL [Suspect]
     Indication: HYPERTENSION
     Route: 048
     Dates: start: 20090101
  2. COAPROVEL [Suspect]

REACTIONS (3)
  - ANAPHYLACTIC SHOCK [None]
  - ARTHROPOD STING [None]
  - CARDIO-RESPIRATORY ARREST [None]
